FAERS Safety Report 5814306-2 (Version None)
Quarter: 2008Q3

REPORT INFORMATION
  Report Type: 
  Country: None (occurrence: None)
  Receive Date: 20080717
  Receipt Date: 20080710
  Transmission Date: 20090109
  Serious: Yes (Other)
  Sender: FDA-Public Use
  Company Number: US-ELI_LILLY_AND_COMPANY-US200807002255

PATIENT
  Sex: Female
  Weight: 104.76 kg

DRUGS (1)
  1. BYETTA [Suspect]
     Indication: TYPE 2 DIABETES MELLITUS
     Dosage: 5 UG, 2/D
     Route: 058
     Dates: start: 20070201, end: 20080201

REACTIONS (7)
  - ARTHRALGIA [None]
  - BACK DISORDER [None]
  - BLOOD GLUCOSE INCREASED [None]
  - FALL [None]
  - JOINT SWELLING [None]
  - PAIN [None]
  - WRIST FRACTURE [None]
